FAERS Safety Report 6062319-0 (Version None)
Quarter: 2009Q1

REPORT INFORMATION
  Report Type: 
  Country: None (occurrence: None)
  Receive Date: 20090203
  Receipt Date: 20090121
  Transmission Date: 20090719
  Serious: Yes (Hospitalization)
  Sender: FDA-Public Use
  Company Number: PHHY2009GB02700

PATIENT
  Age: 70 Year
  Sex: Male

DRUGS (1)
  1. VALSARTAN [Suspect]
     Indication: HYPERTENSION
     Dosage: 80 MG, UNK
     Route: 048
     Dates: start: 20061201, end: 20090101

REACTIONS (2)
  - BLOOD SODIUM DECREASED [None]
  - WHITE BLOOD CELL COUNT INCREASED [None]
